FAERS Safety Report 20328954 (Version 1)
Quarter: 2022Q1

REPORT INFORMATION
  Report Type: Spontaneous
  Country: CN (occurrence: CN)
  Receive Date: 20220112
  Receipt Date: 20220112
  Transmission Date: 20220423
  Serious: Yes (Other)
  Sender: FDA-Public Use
  Company Number: CN-Merck Healthcare KGaA-9270025

PATIENT
  Age: 35 Year
  Sex: Female

DRUGS (4)
  1. EUTHYROX [Suspect]
     Active Substance: LEVOTHYROXINE SODIUM
     Indication: Product used for unknown indication
     Route: 065
  2. NADROPARIN CALCIUM [Suspect]
     Active Substance: NADROPARIN CALCIUM
     Indication: Thrombosis prophylaxis
     Route: 058
     Dates: start: 20191005, end: 20191007
  3. PROGESTERONE [Concomitant]
     Active Substance: PROGESTERONE
     Indication: Renal disorder
     Dates: start: 20191005
  4. PROGESTERONE [Concomitant]
     Active Substance: PROGESTERONE
     Indication: Pregnancy

REACTIONS (2)
  - Drug-induced liver injury [Recovering/Resolving]
  - Maternal exposure during pregnancy [Unknown]

NARRATIVE: CASE EVENT DATE: 20191007
